FAERS Safety Report 6781244-0 (Version None)
Quarter: 2010Q2

REPORT INFORMATION
  Report Type: 
  Country: None (occurrence: None)
  Receive Date: 20100617
  Receipt Date: 20100617
  Transmission Date: 20101027
  Serious: No
  Sender: FDA-Public Use
  Company Number: None

PATIENT
  Age: 73 Year
  Sex: Female
  Weight: 65.7716 kg

DRUGS (1)
  1. DETROL [Suspect]
     Indication: INCONTINENCE
     Dosage: 1 TO 4 MG. OVER YEARS ONE DAY PO
     Route: 048
     Dates: start: 20010102, end: 20081107

REACTIONS (3)
  - AMNESIA [None]
  - NERVOUS SYSTEM DISORDER [None]
  - NUCLEAR MAGNETIC RESONANCE IMAGING BRAIN ABNORMAL [None]
